FAERS Safety Report 5496489-X (Version None)
Quarter: 2007Q4

REPORT INFORMATION
  Report Type: 
  Country: None (occurrence: None)
  Receive Date: 20071025
  Receipt Date: 20071015
  Transmission Date: 20080405
  Serious: Yes (Disabling)
  Sender: FDA-Public Use
  Company Number: BR-ELI_LILLY_AND_COMPANY-BR200710004145

PATIENT
  Age: 90 Year
  Sex: Female

DRUGS (7)
  1. FORTEO [Suspect]
     Indication: OSTEOPOROSIS
     Dosage: 20 UG, DAILY (1/D)
     Route: 065
     Dates: start: 20070913, end: 20070927
  2. SERTRALINE [Concomitant]
     Indication: DEPRESSION
     Dosage: UNK, UNKNOWN
     Route: 065
  3. PROLOPA [Concomitant]
     Indication: PARKINSON'S DISEASE
     Dosage: UNK, UNKNOWN
     Route: 065
  4. TAMARINE [Concomitant]
     Dosage: UNK, UNKNOWN
     Route: 065
  5. LISADOR [Concomitant]
     Dosage: UNK, UNKNOWN
     Route: 065
  6. TYLENOL /SCH/ [Concomitant]
     Indication: SPINAL FRACTURE
     Dosage: UNK, UNKNOWN
     Route: 065
  7. MOTRIN [Concomitant]
     Indication: BACK PAIN
     Dosage: UNK, AS NEEDED
     Route: 065

REACTIONS (1)
  - RETINAL ARTERY OCCLUSION [None]
